FAERS Safety Report 15901752 (Version 6)
Quarter: 2020Q3

REPORT INFORMATION
  Report Type: Spontaneous
  Country: US (occurrence: US)
  Receive Date: 20190201
  Receipt Date: 20200701
  Transmission Date: 20201102
  Serious: Yes (Hospitalization)
  Sender: FDA-Public Use
  Company Number: US-ACTELION-A-NJ2019-185683

PATIENT
  Sex: Male
  Weight: 75.28 kg

DRUGS (1)
  1. OPSUMIT [Suspect]
     Active Substance: MACITENTAN
     Indication: PULMONARY ARTERIAL HYPERTENSION
     Dosage: 10 MG, QD
     Route: 048

REACTIONS (9)
  - Stoma site haemorrhage [Unknown]
  - Gout [Unknown]
  - Unevaluable event [Unknown]
  - Transfusion [Unknown]
  - Urinary tract infection [Unknown]
  - Constipation [Unknown]
  - Oxygen saturation decreased [Unknown]
  - Pyrexia [Unknown]
  - Dyspepsia [Unknown]
